FAERS Safety Report 10015644 (Version 1)
Quarter: 2014Q1

REPORT INFORMATION
  Report Type: Spontaneous
  Country: JP (occurrence: JP)
  Receive Date: 20140317
  Receipt Date: 20140317
  Transmission Date: 20141002
  Serious: Yes (Other)
  Sender: FDA-Public Use
  Company Number: JP-009507513-1403JPN006504

PATIENT
  Sex: Male

DRUGS (2)
  1. GASTER D [Suspect]
     Route: 048
  2. ANTINEOPLASTIC (UNSPECIFIED) [Concomitant]
     Route: 048

REACTIONS (1)
  - Interstitial lung disease [Unknown]
